FAERS Safety Report 8340889-7 (Version None)
Quarter: 2012Q2

REPORT INFORMATION
  Report Type: 
  Country: None (occurrence: None)
  Receive Date: 20120507
  Receipt Date: 20120425
  Transmission Date: 20120825
  Serious: Yes (Hospitalization, Other)
  Sender: FDA-Public Use
  Company Number: JP-ROCHE-1063644

PATIENT
  Sex: Male

DRUGS (1)
  1. ACTEMRA [Suspect]
     Indication: STILL'S DISEASE ADULT ONSET
     Route: 041
     Dates: start: 20110627

REACTIONS (3)
  - CARDIAC FAILURE [None]
  - ATRIAL FIBRILLATION [None]
  - SPINAL COLUMN STENOSIS [None]
